FAERS Safety Report 8455040-2 (Version None)
Quarter: 2012Q2

REPORT INFORMATION
  Report Type: 
  Country: None (occurrence: None)
  Receive Date: 20120613
  Receipt Date: 20120604
  Transmission Date: 20120825
  Serious: Yes (Other)
  Sender: FDA-Public Use
  Company Number: 2012SP016910

PATIENT
  Age: 77 Year
  Sex: Female

DRUGS (1)
  1. SYLATRON [Suspect]
     Indication: MALIGNANT MELANOMA
     Dosage: 300 MCG;QW;SC
     Route: 058
     Dates: start: 20120222

REACTIONS (6)
  - DECREASED APPETITE [None]
  - MALAISE [None]
  - MYALGIA [None]
  - ABDOMINAL PAIN UPPER [None]
  - PSEUDODIVERTICULAR DISEASE [None]
  - NAUSEA [None]
